FAERS Safety Report 7285648-1 (Version None)
Quarter: 2011Q1

REPORT INFORMATION
  Report Type: 
  Country: None (occurrence: None)
  Receive Date: 20110210
  Receipt Date: 20110204
  Transmission Date: 20110831
  Serious: Yes (Other)
  Sender: FDA-Public Use
  Company Number: A0911971A

PATIENT
  Age: 71 Year
  Sex: Female

DRUGS (6)
  1. VENTOLIN HFA [Suspect]
     Dosage: 1PUFF FOUR TIMES PER DAY
     Route: 055
     Dates: start: 20101222, end: 20101226
  2. AVAPRO [Suspect]
     Route: 048
     Dates: end: 20101229
  3. NORVASC [Concomitant]
  4. ZITHROMAX [Concomitant]
  5. ATENOLOL [Concomitant]
  6. SYNTHROID [Concomitant]

REACTIONS (7)
  - HEART RATE IRREGULAR [None]
  - ATRIAL FIBRILLATION [None]
  - MALAISE [None]
  - DIZZINESS [None]
  - BLOOD PRESSURE DECREASED [None]
  - FATIGUE [None]
  - GAIT DISTURBANCE [None]
